FAERS Safety Report 5353083-9 (Version None)
Quarter: 2007Q2

REPORT INFORMATION
  Report Type: 
  Country: None (occurrence: None)
  Receive Date: 20070611
  Receipt Date: 20070530
  Transmission Date: 20071010
  Serious: Yes (Other)
  Sender: FDA-Public Use
  Company Number: GB-PFIZER INC-2007045357

PATIENT
  Sex: Male

DRUGS (2)
  1. NEURONTIN [Suspect]
     Indication: NEURALGIA
     Route: 048
  2. ANTI-DIABETICS [Concomitant]
     Route: 048

REACTIONS (1)
  - BLOOD GLUCOSE ABNORMAL [None]
